FAERS Safety Report 23191126 (Version 1)
Quarter: 2023Q4

REPORT INFORMATION
  Report Type: Spontaneous
  Country: ES (occurrence: ES)
  Receive Date: 20231116
  Receipt Date: 20231116
  Transmission Date: 20240110
  Serious: Yes (Other)
  Sender: FDA-Public Use
  Company Number: ES-BAUSCHBL-2023BNL011537

PATIENT
  Age: 62 Year
  Sex: Female

DRUGS (12)
  1. DEXAMETHASONE [Suspect]
     Active Substance: DEXAMETHASONE
     Indication: Plasma cell myeloma
     Dosage: 4 CYCLES (BORTEZOMIB-DEXAMETHASONE)
     Route: 065
     Dates: start: 200902
  2. DEXAMETHASONE [Suspect]
     Active Substance: DEXAMETHASONE
     Dosage: 2 CYCLES, HIGH DEXAMETHASONE DOSES
     Route: 065
     Dates: start: 200906, end: 200907
  3. DEXAMETHASONE [Suspect]
     Active Substance: DEXAMETHASONE
     Dosage: TWO ALTERNATING CYCLES (VBMCP/VBAD)
     Route: 065
     Dates: start: 200909, end: 201001
  4. BORTEZOMIB [Suspect]
     Active Substance: BORTEZOMIB
     Indication: Plasma cell myeloma
     Dosage: FOUR CYCLES (BORTEZOMIB-DEXAMETHASONE)
     Route: 065
     Dates: start: 200902, end: 2009
  5. VINCRISTINE [Suspect]
     Active Substance: VINCRISTINE
     Indication: Plasma cell myeloma
     Dosage: TWO ALTERNATING CYCLES (VBMCP/VBAD)
     Route: 065
     Dates: start: 200909, end: 201001
  6. BICNU [Suspect]
     Active Substance: CARMUSTINE
     Indication: Plasma cell myeloma
     Dosage: TWO ALTERNATING CYCLES (VBMCP/VBAD)
     Route: 065
     Dates: start: 200909, end: 201001
  7. MELPHALAN [Suspect]
     Active Substance: MELPHALAN
     Indication: Plasma cell myeloma
     Dosage: TWO ALTERNATING CYCLES (VBMCP/VBAD)
     Route: 065
     Dates: start: 200909, end: 201001
  8. MELPHALAN [Suspect]
     Active Substance: MELPHALAN
     Route: 065
     Dates: start: 201006
  9. CYCLOPHOSPHAMIDE [Suspect]
     Active Substance: CYCLOPHOSPHAMIDE
     Indication: Plasma cell myeloma
     Dosage: TWO ALTERNATING CYCLES (VBMCP/VBAD)
     Route: 065
     Dates: start: 200909, end: 201001
  10. PREDNISONE [Suspect]
     Active Substance: PREDNISONE
     Indication: Plasma cell myeloma
     Dosage: TWO ALTERNATING CYCLES (VBMCP/VBAD)
     Route: 065
     Dates: start: 200909, end: 201001
  11. ADRIAMYCIN [Suspect]
     Active Substance: DOXORUBICIN HYDROCHLORIDE
     Indication: Plasma cell myeloma
     Dosage: TWO ALTERNATING CYCLES (VBMCP/VBAD)
     Route: 065
     Dates: start: 200909, end: 201001
  12. DEXAMETHASONE\LENALIDOMIDE [Suspect]
     Active Substance: DEXAMETHASONE\LENALIDOMIDE
     Indication: Plasma cell myeloma
     Dosage: THREE CYCLES OF THE COMBINATION OF LENALIDOMIDE PLUS DEXAMETHASONE
     Route: 065
     Dates: start: 201002, end: 201004

REACTIONS (1)
  - Therapy non-responder [Unknown]

NARRATIVE: CASE EVENT DATE: 20090201
